FAERS Safety Report 4860019-3 (Version None)
Quarter: 2005Q4

REPORT INFORMATION
  Report Type: 
  Country: None (occurrence: None)
  Receive Date: 20051219
  Receipt Date: 20051129
  Transmission Date: 20060501
  Serious: Yes (Disabling)
  Sender: FDA-Public Use
  Company Number: 2005GB02343

PATIENT
  Age: 59 Year
  Sex: Female
  Weight: 54 kg

DRUGS (9)
  1. FOSCARNET SODIUM [Suspect]
     Indication: CYTOMEGALOVIRUS INFECTION
     Dosage: BETWEEN 4.9 G BID TO 3.24 G TID
     Route: 042
     Dates: start: 20050810, end: 20050901
  2. FOSCARNET SODIUM [Suspect]
     Route: 042
     Dates: start: 20050930, end: 20051025
  3. CYCLOSPORINE [Concomitant]
     Route: 048
  4. ITRACONAZOLE [Concomitant]
     Indication: PROPHYLAXIS
     Route: 048
  5. SODIUM CLODRONATE TETRAHYDRATE [Concomitant]
     Indication: MULTIPLE MYELOMA
     Route: 048
  6. OMEPRAZOLE [Concomitant]
     Route: 048
  7. FOLIC ACID [Concomitant]
     Route: 048
  8. ZOPICLONE [Concomitant]
     Indication: SEDATION
     Route: 048
  9. AZITHROMYCIN [Concomitant]
     Indication: PROPHYLAXIS
     Route: 048

REACTIONS (6)
  - BLADDER DISORDER [None]
  - DYSURIA [None]
  - HAEMATURIA [None]
  - NOCTURIA [None]
  - POLLAKIURIA [None]
  - URETHRAL DISORDER [None]
